FAERS Safety Report 8241855-2 (Version None)
Quarter: 2012Q1

REPORT INFORMATION
  Report Type: 
  Country: None (occurrence: None)
  Receive Date: 20120328
  Receipt Date: 20120314
  Transmission Date: 20120608
  Serious: Yes (Life-Threatening, Hospitalization, Disabling, Other)
  Sender: FDA-Public Use
  Company Number: US-MYLANLABS-2012S1006328

PATIENT
  Sex: Male

DRUGS (39)
  1. DOXYCYCLINE [Concomitant]
  2. LEVAQUIN [Concomitant]
  3. KALETRA [Concomitant]
  4. ALDACTONE [Concomitant]
  5. DOCUSATE [Concomitant]
  6. TOPROL-XL [Concomitant]
  7. SPIRONOLACTONE [Concomitant]
  8. MAGNESIUM [Concomitant]
  9. LASIX [Concomitant]
  10. COREG [Concomitant]
  11. POTASSIUM CHLORIDE [Concomitant]
  12. METOLAZONE [Concomitant]
  13. HEPARIN [Concomitant]
  14. BREVITAL SODIUM [Concomitant]
  15. DIGOXIN [Suspect]
     Dates: start: 20070916, end: 20080530
  16. TRUVADA [Concomitant]
  17. ASPIRIN [Concomitant]
  18. ZOLPIDEM [Concomitant]
  19. AZITHROMYCIN [Concomitant]
  20. FLUVAX [Concomitant]
  21. PERCOCET [Concomitant]
  22. ENALAPRIL MALEATE [Concomitant]
  23. NITROGLYCERIN [Concomitant]
  24. LOVASTATIN [Concomitant]
  25. ERYTHROMYCIN [Concomitant]
  26. KLOR-CON [Concomitant]
  27. HYDRALAZINE HCL [Concomitant]
  28. DOBUTAMINE HCL [Concomitant]
  29. MILRINONE [Concomitant]
  30. ZIDOVUDINE [Concomitant]
  31. BACTRIM [Concomitant]
  32. RETROVIR [Concomitant]
  33. IRON [Concomitant]
  34. LISINOPRIL [Concomitant]
  35. CARVEDILOL [Concomitant]
  36. SULFATRIM /00426201/ [Concomitant]
  37. ISOSORBIDE DINITRATE [Concomitant]
  38. NAPROXEN (ALEVE) [Concomitant]
  39. MAGNESIUM OXIDE [Concomitant]

REACTIONS (85)
  - ACUTE PULMONARY OEDEMA [None]
  - BLOOD PRESSURE INCREASED [None]
  - ENDOTRACHEAL INTUBATION [None]
  - ACTIVITIES OF DAILY LIVING IMPAIRED [None]
  - CHRONIC FATIGUE SYNDROME [None]
  - DRUG ADMINISTRATION ERROR [None]
  - HEPATOMEGALY [None]
  - HYPERHIDROSIS [None]
  - NAUSEA [None]
  - SUFFOCATION FEELING [None]
  - MITRAL VALVE INCOMPETENCE [None]
  - ABDOMINAL TENDERNESS [None]
  - ANAEMIA [None]
  - COMPUTERISED TOMOGRAM THORAX ABNORMAL [None]
  - ELECTROCARDIOGRAM ABNORMAL [None]
  - GENERALISED OEDEMA [None]
  - HEART SOUNDS ABNORMAL [None]
  - SENSATION OF HEAVINESS [None]
  - DYSPNOEA [None]
  - CARDIAC FAILURE CONGESTIVE [None]
  - DISEASE PROGRESSION [None]
  - RENAL FAILURE [None]
  - ASTHENIA [None]
  - CHEST X-RAY ABNORMAL [None]
  - CONDITION AGGRAVATED [None]
  - HIV INFECTION [None]
  - MENTAL DISORDER [None]
  - NASOPHARYNGITIS [None]
  - PNEUMONIA [None]
  - TENDERNESS [None]
  - URINE OUTPUT DECREASED [None]
  - VENOUS PRESSURE JUGULAR INCREASED [None]
  - VENTRICULAR EXTRASYSTOLES [None]
  - HYPERKALAEMIA [None]
  - VENTRICULAR TACHYCARDIA [None]
  - ABDOMINAL DISTENSION [None]
  - ACQUIRED IMMUNODEFICIENCY SYNDROME [None]
  - FEELING JITTERY [None]
  - MALAISE [None]
  - PAIN [None]
  - PRODUCTIVE COUGH [None]
  - VOMITING [None]
  - CARDIAC FAILURE CHRONIC [None]
  - CONGESTIVE CARDIOMYOPATHY [None]
  - ANXIETY [None]
  - CONFUSIONAL STATE [None]
  - COUGH [None]
  - EXERCISE TOLERANCE DECREASED [None]
  - INCISION SITE PAIN [None]
  - ORTHOPNOEA [None]
  - TACHYPNOEA [None]
  - WEIGHT INCREASED [None]
  - CARDIOGENIC SHOCK [None]
  - BRONCHITIS [None]
  - ECHOCARDIOGRAM ABNORMAL [None]
  - HAEMATOCHEZIA [None]
  - HAEMOPTYSIS [None]
  - HYPOTENSION [None]
  - TACHYCARDIA [None]
  - TEMPERATURE INTOLERANCE [None]
  - TOOTH LOSS [None]
  - TREATMENT FAILURE [None]
  - CARDIOMYOPATHY [None]
  - DISEASE RECURRENCE [None]
  - PLEURAL EFFUSION [None]
  - ABDOMINAL PAIN [None]
  - EARLY SATIETY [None]
  - PALPITATIONS [None]
  - PHYSICAL DISABILITY [None]
  - BLOOD PRESSURE DECREASED [None]
  - CARDIAC FAILURE [None]
  - MECHANICAL VENTILATION [None]
  - CARDIAC MURMUR [None]
  - CHEST PAIN [None]
  - DIARRHOEA [None]
  - EMOTIONAL DISTRESS [None]
  - FAMILY STRESS [None]
  - FATIGUE [None]
  - HEPATOJUGULAR REFLUX [None]
  - MUSCLE SPASMS [None]
  - MUSCULOSKELETAL CHEST PAIN [None]
  - OEDEMA [None]
  - PHYSICAL EXAMINATION ABNORMAL [None]
  - PYREXIA [None]
  - RALES [None]
